FAERS Safety Report 13332600 (Version 1)
Quarter: 2017Q1

REPORT INFORMATION
  Report Type: Spontaneous
  Country: US (occurrence: US)
  Receive Date: 20170314
  Receipt Date: 20170314
  Transmission Date: 20170428
  Serious: No
  Sender: FDA-Public Use
  Company Number: US-DRREDDYS-USA/USA/16/0085159

PATIENT
  Age: 83 Year
  Sex: Male

DRUGS (2)
  1. LEVETIRACETAM 250 MG [Suspect]
     Active Substance: LEVETIRACETAM
     Indication: ORTHOSTATIC TREMOR
     Route: 065
  2. CLONAZEPAM. [Concomitant]
     Active Substance: CLONAZEPAM
     Indication: ORTHOSTATIC TREMOR
     Route: 065

REACTIONS (2)
  - Sedation [Unknown]
  - Dizziness [Unknown]
